FAERS Safety Report 8063283-5 (Version None)
Quarter: 2012Q1

REPORT INFORMATION
  Report Type: 
  Country: None (occurrence: None)
  Receive Date: 20120123
  Receipt Date: 20120109
  Transmission Date: 20120608
  Serious: Yes (Life-Threatening, Hospitalization, Other)
  Sender: FDA-Public Use
  Company Number: PHFR2011IE03894

PATIENT
  Sex: Female

DRUGS (8)
  1. ASPIRIN [Concomitant]
     Dosage: 75 MG, DAILY
     Route: 048
  2. CLOZARIL [Suspect]
     Dosage: 50 MG IN MORNING AND 200 MG IN NOCTE
     Route: 048
     Dates: start: 20110614
  3. CLOZARIL [Suspect]
     Indication: SCHIZOPHRENIA
     Dosage: 100 MG IN MORNING AND 200 MG IN NOCTE
     Route: 048
     Dates: start: 20060724
  4. LEVOTHYROXINE SODIUM [Concomitant]
     Indication: HYPERTHYROIDISM
     Dosage: 75 MG, DAILY
     Route: 048
  5. ATORVASTATIN [Concomitant]
     Indication: HYPERCHOLESTEROLAEMIA
     Dosage: 20 MG, DAILY
     Route: 048
  6. OMEGA-EFA [Concomitant]
     Indication: MENTAL DISORDER
     Dosage: 2 G, DAILY
     Route: 048
  7. ARIPIPRAZOLE [Concomitant]
     Indication: SCHIZOPHRENIA
     Dosage: 20 MG, DAILY
     Route: 048
  8. GALFER [Concomitant]
     Dosage: DAILY

REACTIONS (5)
  - PNEUMONIA ASPIRATION [None]
  - MUSCLE TWITCHING [None]
  - GRAND MAL CONVULSION [None]
  - GENERAL PHYSICAL HEALTH DETERIORATION [None]
  - ENCEPHALOPATHY [None]
